FAERS Safety Report 23286914 (Version 2)
Quarter: 2023Q4

REPORT INFORMATION
  Report Type: Other
  Country: RO (occurrence: RO)
  Receive Date: 20231212
  Receipt Date: 20231225
  Transmission Date: 20240109
  Serious: Yes (Life-Threatening, Hospitalization)
  Sender: FDA-Public Use
  Company Number: RO-ALVOGEN-2023092720

PATIENT
  Age: 33 Year
  Sex: Male

DRUGS (2)
  1. VENLAFAXINE [Suspect]
     Active Substance: VENLAFAXINE HYDROCHLORIDE
     Indication: Product used for unknown indication
     Dosage: 4.5 GM
     Route: 048
  2. QUETIAPINE [Suspect]
     Active Substance: QUETIAPINE
     Indication: Product used for unknown indication
     Dosage: 12 G
     Route: 048

REACTIONS (17)
  - Extrasystoles [Recovering/Resolving]
  - Circulatory collapse [Recovering/Resolving]
  - Ventricular extrasystoles [Recovering/Resolving]
  - Cardiotoxicity [Recovering/Resolving]
  - Hyperdynamic left ventricle [Recovering/Resolving]
  - Toxicity to various agents [Recovering/Resolving]
  - Loss of consciousness [Recovering/Resolving]
  - Nodal arrhythmia [Recovering/Resolving]
  - Electrocardiogram QT prolonged [Recovering/Resolving]
  - Generalised tonic-clonic seizure [Recovering/Resolving]
  - Suicide attempt [Unknown]
  - Hypotension [Recovering/Resolving]
  - Ventricular tachycardia [Recovering/Resolving]
  - Sinus bradycardia [Recovering/Resolving]
  - Product use issue [Unknown]
  - Intentional product misuse [Unknown]
  - Intentional overdose [Unknown]
